FAERS Safety Report 6859454-3 (Version None)
Quarter: 2010Q3

REPORT INFORMATION
  Report Type: 
  Country: None (occurrence: None)
  Receive Date: 20100719
  Receipt Date: 20080227
  Transmission Date: 20110219
  Serious: No
  Sender: FDA-Public Use
  Company Number: US-PFIZER INC-2008019993

PATIENT
  Sex: Female
  Weight: 93.636 kg

DRUGS (6)
  1. CHANTIX [Suspect]
     Indication: SMOKING CESSATION THERAPY
     Route: 048
     Dates: start: 20080207
  2. TOPAMAX [Concomitant]
  3. RISPERDAL [Concomitant]
  4. AMBIEN [Concomitant]
  5. LEXAPRO [Concomitant]
  6. MOMETASONE FUROATE [Concomitant]

REACTIONS (2)
  - ABNORMAL DREAMS [None]
  - FLATULENCE [None]
